FAERS Safety Report 7129446-8 (Version None)
Quarter: 2010Q4

REPORT INFORMATION
  Report Type: 
  Country: None (occurrence: None)
  Receive Date: 20101104
  Receipt Date: 20101027
  Transmission Date: 20110411
  Serious: Yes (Hospitalization, Other)
  Sender: FDA-Public Use
  Company Number: 2010SP042224

PATIENT
  Age: 30 Year
  Sex: Female
  Weight: 68.0396 kg

DRUGS (1)
  1. NUVARING [Suspect]
     Indication: CONTRACEPTION
     Dates: start: 20080101, end: 20080801

REACTIONS (16)
  - ANXIETY [None]
  - ARTHRALGIA [None]
  - CHEST PAIN [None]
  - CHOLECYSTECTOMY [None]
  - COLITIS [None]
  - DEPRESSION [None]
  - FIBROMYALGIA [None]
  - HEART RATE INCREASED [None]
  - MEMORY IMPAIRMENT [None]
  - MIGRAINE [None]
  - OVARIAN INFECTION [None]
  - PAIN [None]
  - RENAL DISORDER [None]
  - STRESS [None]
  - SYSTEMIC LUPUS ERYTHEMATOSUS [None]
  - VENOUS THROMBOSIS [None]
